FAERS Safety Report 9778620 (Version 2)
Quarter: 2014Q1

REPORT INFORMATION
  Report Type: Spontaneous
  Country: JP (occurrence: JP)
  Receive Date: 20131223
  Receipt Date: 20140128
  Transmission Date: 20141002
  Serious: Yes (Hospitalization, Other)
  Sender: FDA-Public Use
  Company Number: JP-NOVOPROD-395782

PATIENT
  Age: 54 Year
  Sex: Male
  Weight: 56 kg

DRUGS (5)
  1. VICTOZA HIKACHU INJECTION [Suspect]
     Indication: TYPE 2 DIABETES MELLITUS
     Dosage: 0.9 MG, QD
     Route: 058
     Dates: start: 20120318
  2. SEIBULE [Suspect]
     Indication: TYPE 2 DIABETES MELLITUS
     Dosage: 150 MG, QD
     Route: 048
     Dates: start: 20120707
  3. AMARYL [Suspect]
     Indication: TYPE 2 DIABETES MELLITUS
     Dosage: 0.5 MG, UNK
     Route: 048
  4. BASEN /01290601/ [Suspect]
     Indication: TYPE 2 DIABETES MELLITUS
     Dosage: 0.2 MG, TID
     Route: 048
     Dates: start: 20100501, end: 20120706
  5. DIOVAN [Concomitant]
     Indication: HYPERTENSION
     Dosage: 20-80 MG/DAY
     Dates: start: 20100501, end: 20121207

REACTIONS (3)
  - Clear cell renal cell carcinoma [Recovering/Resolving]
  - Glomerulonephritis chronic [Not Recovered/Not Resolved]
  - Diabetic nephropathy [Not Recovered/Not Resolved]
